FAERS Safety Report 17813330 (Version 1)
Quarter: 2020Q2

REPORT INFORMATION
  Report Type: Other
  Country: US (occurrence: CH)
  Receive Date: 20200521
  Receipt Date: 20200521
  Transmission Date: 20200714
  Serious: Yes (Life-Threatening, Hospitalization, Other)
  Sender: FDA-Public Use
  Company Number: CH-BRECKENRIDGE PHARMACEUTICAL, INC.-2084065

PATIENT
  Age: 43 Year
  Sex: Male

DRUGS (6)
  1. CYCLOSPORINE. [Concomitant]
     Active Substance: CYCLOSPORINE
  2. IMATINIB. [Suspect]
     Active Substance: IMATINIB MESYLATE
     Indication: MYELOID LEUKAEMIA
  3. HEMATOPOIETIC STEM CELL TRANSPLANTATION [Concomitant]
  4. DAUNORUBICIN HYDROCHLORIDE. [Concomitant]
     Active Substance: DAUNORUBICIN HYDROCHLORIDE
  5. CYTARABINE. [Concomitant]
     Active Substance: CYTARABINE
  6. IDARUBICIN HYDROCHLORIDE. [Concomitant]
     Active Substance: IDARUBICIN HYDROCHLORIDE

REACTIONS (2)
  - Human polyomavirus infection [None]
  - Progressive multifocal leukoencephalopathy [None]
